FAERS Safety Report 14992485 (Version 2)
Quarter: 2018Q2

REPORT INFORMATION
  Report Type: Spontaneous
  Country: IE (occurrence: IE)
  Receive Date: 20180609
  Receipt Date: 20180612
  Transmission Date: 20180711
  Serious: Yes (Other)
  Sender: FDA-Public Use
  Company Number: IE-TEVA-2018-IE-898074

PATIENT
  Age: 56 Year
  Sex: Female
  Weight: 60.38 kg

DRUGS (2)
  1. AMLODIPINE [Suspect]
     Active Substance: AMLODIPINE BESYLATE
     Indication: HYPERTENSION
     Route: 048
     Dates: start: 20060201, end: 20180209
  2. AMLODIPINE [Suspect]
     Active Substance: AMLODIPINE BESYLATE
     Route: 048
     Dates: start: 20060201, end: 20180209

REACTIONS (6)
  - Palpitations [Recovered/Resolved]
  - Eye pain [Recovering/Resolving]
  - Blepharitis [Recovering/Resolving]
  - Chalazion [Recovering/Resolving]
  - Cough [Recovering/Resolving]
  - Eyelid irritation [Recovered/Resolved]

NARRATIVE: CASE EVENT DATE: 20111014
